FAERS Safety Report 10040746 (Version 1)
Quarter: 2014Q1

REPORT INFORMATION
  Report Type: Spontaneous
  Country: FR (occurrence: FR)
  Receive Date: 20140327
  Receipt Date: 20140327
  Transmission Date: 20141002
  Serious: Yes (Other)
  Sender: FDA-Public Use
  Company Number: FR-JNJFOC-20140308871

PATIENT
  Age: 73 Year
  Sex: Female

DRUGS (4)
  1. CAELYX [Suspect]
     Indication: METASTASES TO PERITONEUM
     Route: 042
     Dates: start: 20140107, end: 20140107
  2. CAELYX [Suspect]
     Indication: METASTASES TO PERITONEUM
     Route: 042
     Dates: start: 20131210, end: 20131210
  3. CAELYX [Suspect]
     Indication: OVARIAN EPITHELIAL CANCER
     Route: 042
     Dates: start: 20140107, end: 20140107
  4. CAELYX [Suspect]
     Indication: OVARIAN EPITHELIAL CANCER
     Route: 042
     Dates: start: 20131210, end: 20131210

REACTIONS (4)
  - Skin reaction [Recovering/Resolving]
  - Erythema [Recovered/Resolved]
  - Pruritus [Recovered/Resolved]
  - Burning sensation [Recovered/Resolved]
